FAERS Safety Report 9836786 (Version 1)
Quarter: 2014Q1

REPORT INFORMATION
  Report Type: Spontaneous
  Country: US (occurrence: None)
  Receive Date: 20140116
  Receipt Date: 20140116
  Transmission Date: 20141002
  Serious: Yes (Hospitalization)
  Sender: FDA-Public Use
  Company Number: None

PATIENT
  Age: 60 Year
  Sex: Female
  Weight: 104.78 kg

DRUGS (1)
  1. QSYMIA [Suspect]
     Indication: OBESITY
     Dates: start: 20121029, end: 20131230

REACTIONS (1)
  - Suicide attempt [None]
